FAERS Safety Report 4594108-8 (Version None)
Quarter: 2005Q1

REPORT INFORMATION
  Report Type: 
  Country: None (occurrence: None)
  Receive Date: 20050222
  Receipt Date: 20050211
  Transmission Date: 20050727
  Serious: Yes (Other)
  Sender: FDA-Public Use
  Company Number: 2005-02-0568

PATIENT
  Age: 56 Year
  Sex: Female

DRUGS (2)
  1. PEG-INTRON [Suspect]
     Indication: HEPATITIS C
     Dosage: SUBCUTANEOUS
     Route: 058
  2. INTERFERON ALFA-2B [Suspect]
     Indication: HEPATITIS C
     Dosage: 2 CYLE(S)

REACTIONS (10)
  - ANTINUCLEAR ANTIBODY POSITIVE [None]
  - AUTOANTIBODY POSITIVE [None]
  - AUTOIMMUNE HEPATITIS [None]
  - CONDITION AGGRAVATED [None]
  - HEPATIC CIRRHOSIS [None]
  - HEPATITIS C RNA POSITIVE [None]
  - HYPERGAMMAGLOBULINAEMIA [None]
  - SMOOTH MUSCLE ANTIBODY POSITIVE [None]
  - TRANSAMINASES INCREASED [None]
  - VIRAL LOAD DECREASED [None]
